FAERS Safety Report 7723344-4 (Version None)
Quarter: 2011Q3

REPORT INFORMATION
  Report Type: 
  Country: None (occurrence: None)
  Receive Date: 20110901
  Receipt Date: 20110901
  Transmission Date: 20111222
  Serious: Yes (Other)
  Sender: FDA-Public Use
  Company Number: None

PATIENT
  Age: 48 Year
  Sex: Female
  Weight: 63.502 kg

DRUGS (1)
  1. LISINOPRIL (GENERIC PINK ROUND) [Suspect]
     Indication: HYPERTENSION
     Dosage: 5 MG
     Route: 048
     Dates: start: 20110812, end: 20110826

REACTIONS (12)
  - FATIGUE [None]
  - PALPITATIONS [None]
  - BLOOD PRESSURE SYSTOLIC INCREASED [None]
  - NERVOUSNESS [None]
  - NO THERAPEUTIC RESPONSE [None]
  - PRODUCT SUBSTITUTION ISSUE [None]
  - HEADACHE [None]
  - BLOOD PRESSURE FLUCTUATION [None]
  - FEELING JITTERY [None]
  - INSOMNIA [None]
  - FEELING ABNORMAL [None]
  - SOMNOLENCE [None]
